FAERS Safety Report 13725362 (Version 3)
Quarter: 2017Q4

REPORT INFORMATION
  Report Type: Spontaneous
  Country: US (occurrence: US)
  Receive Date: 20170706
  Receipt Date: 20171009
  Transmission Date: 20180320
  Serious: No
  Sender: FDA-Public Use
  Company Number: US-PFIZER INC-2017288237

PATIENT
  Age: 67 Year
  Sex: Male

DRUGS (1)
  1. REVATIO [Suspect]
     Active Substance: SILDENAFIL CITRATE
     Indication: VENTRICULAR ASSIST DEVICE INSERTION
     Dosage: 20 MG, 3X/DAY
     Route: 048
     Dates: start: 201602

REACTIONS (2)
  - Product use in unapproved indication [Unknown]
  - Nasopharyngitis [Recovering/Resolving]

NARRATIVE: CASE EVENT DATE: 201602
